FAERS Safety Report 7107313-3 (Version None)
Quarter: 2010Q4

REPORT INFORMATION
  Report Type: 
  Country: None (occurrence: None)
  Receive Date: 20101117
  Receipt Date: 20101105
  Transmission Date: 20110411
  Serious: Yes (Other)
  Sender: FDA-Public Use
  Company Number: BE-BIOGENIDEC-2010BI031879

PATIENT
  Age: 49 Year
  Sex: Female

DRUGS (5)
  1. TYSABRI [Suspect]
     Indication: RELAPSING-REMITTING MULTIPLE SCLEROSIS
     Route: 042
     Dates: start: 20080314, end: 20100827
  2. TYSABRI [Suspect]
     Dates: start: 20101020
  3. TOVIAZ [Concomitant]
  4. D-CURE [Concomitant]
  5. HARMONET [Concomitant]

REACTIONS (1)
  - CERVIX CARCINOMA [None]
